FAERS Safety Report 12753198 (Version 1)
Quarter: 2016Q3

REPORT INFORMATION
  Report Type: Spontaneous
  Country: GB (occurrence: GB)
  Receive Date: 20160916
  Receipt Date: 20160916
  Transmission Date: 20161109
  Serious: Yes (Other)
  Sender: FDA-Public Use
  Company Number: GB-BAUSCH-BL-2016-022033

PATIENT
  Age: 91 Year
  Sex: Male

DRUGS (1)
  1. TROPICAMIDE. [Suspect]
     Active Substance: TROPICAMIDE
     Indication: PRODUCT USED FOR UNKNOWN INDICATION
     Route: 047
     Dates: start: 20160704

REACTIONS (5)
  - Circulatory collapse [Recovered/Resolved]
  - Unresponsive to stimuli [Recovered/Resolved]
  - Pulse abnormal [Recovered/Resolved]
  - Dizziness [Recovered/Resolved]
  - Respiratory arrest [Recovered/Resolved]

NARRATIVE: CASE EVENT DATE: 20160704
